FAERS Safety Report 18445977 (Version 1)
Quarter: 2020Q4

REPORT INFORMATION
  Report Type: Spontaneous
  Country: IN (occurrence: IN)
  Receive Date: 20201030
  Receipt Date: 20201030
  Transmission Date: 20210114
  Serious: Yes (Other)
  Sender: FDA-Public Use
  Company Number: IN-PFIZER INC-2020063844

PATIENT
  Age: 69 Year
  Sex: Female

DRUGS (4)
  1. PALBACE [Suspect]
     Active Substance: PALBOCICLIB
     Indication: BREAST CANCER METASTATIC
     Dosage: 125 MG, DAILY, 21 DAYS AND 9 DAYS OFF
     Route: 048
     Dates: start: 20191227
  2. LYCOGEM [Suspect]
     Active Substance: MINERALS\VITAMINS
     Dosage: 1 DF, DAILY
  3. FEMARA [Suspect]
     Active Substance: LETROZOLE
     Dosage: 1 DF, DAILY
  4. PALBACE [Suspect]
     Active Substance: PALBOCICLIB
     Dosage: 100 MG, CYCLIC (FOR 15 DAYS AND 15 DAYS GAP)
     Route: 048

REACTIONS (12)
  - Haemorrhage subcutaneous [Unknown]
  - Decreased appetite [Unknown]
  - Platelet count decreased [Unknown]
  - Asthenia [Unknown]
  - White blood cell count decreased [Unknown]
  - Mouth ulceration [Unknown]
  - Haemoglobin decreased [Unknown]
  - Hepatic lesion [Unknown]
  - Rash [Unknown]
  - Hypersensitivity [Unknown]
  - Stomatitis [Unknown]
  - Pruritus [Unknown]

NARRATIVE: CASE EVENT DATE: 20200608
